FAERS Safety Report 11030150 (Version 1)
Quarter: 2015Q2

REPORT INFORMATION
  Report Type: Spontaneous
  Country: US (occurrence: None)
  Receive Date: 20150413
  Receipt Date: 20150413
  Transmission Date: 20150821
  Serious: Yes (Hospitalization, Other)
  Sender: FDA-Public Use
  Company Number: None

PATIENT
  Age: 68 Year
  Sex: Female

DRUGS (9)
  1. BABY ASPIRIN [Concomitant]
     Active Substance: ASPIRIN
  2. PRISTIQ EXTENDED RELEASE [Concomitant]
     Active Substance: DESVENLAFAXINE SUCCINATE
  3. ATENELOL [Concomitant]
     Active Substance: ATENOLOL
  4. WARFARIN [Concomitant]
     Active Substance: WARFARIN
  5. PROLIA [Suspect]
     Active Substance: DENOSUMAB
     Indication: OSTEOPOROSIS
     Dosage: ONCE EVERY SIX MON, GIVEN INTO/UNDER THE SKIN
  6. CALTRATE [Concomitant]
     Active Substance: CALCIUM CARBONATE
  7. CLONAZAPAM [Concomitant]
  8. ATORVASTIN [Concomitant]
     Active Substance: ATORVASTATIN
  9. SLO NIACIN [Concomitant]

REACTIONS (4)
  - Femur fracture [None]
  - Thrombosis [None]
  - Fall [None]
  - Pulmonary embolism [None]

NARRATIVE: CASE EVENT DATE: 20140817
